FAERS Safety Report 13911642 (Version 1)
Quarter: 2017Q3

REPORT INFORMATION
  Report Type: Spontaneous
  Country: US (occurrence: US)
  Receive Date: 20170828
  Receipt Date: 20170828
  Transmission Date: 20171127
  Serious: No
  Sender: FDA-Public Use
  Company Number: US-ROCHE-1144104

PATIENT
  Sex: Female
  Weight: 91.4 kg

DRUGS (3)
  1. NUTROPIN AQ [Suspect]
     Active Substance: SOMATROPIN
     Route: 058
  2. MELATONIN [Concomitant]
     Active Substance: MELATONIN
  3. NUTROPIN AQ [Suspect]
     Active Substance: SOMATROPIN
     Indication: GROWTH HORMONE DEFICIENCY
     Route: 058
     Dates: start: 20011209

REACTIONS (9)
  - Crying [Unknown]
  - Headache [Recovering/Resolving]
  - Myalgia [Unknown]
  - Pain [Unknown]
  - Joint stiffness [Unknown]
  - Emotional disorder [Unknown]
  - Constipation [Unknown]
  - Depression [Unknown]
  - Feeling cold [Unknown]
